FAERS Safety Report 8366323-9 (Version None)
Quarter: 2012Q2

REPORT INFORMATION
  Report Type: 
  Country: None (occurrence: None)
  Receive Date: 20120517
  Receipt Date: 20120515
  Transmission Date: 20120825
  Serious: Yes (Death, Other)
  Sender: FDA-Public Use
  Company Number: PHEH2012US004258

PATIENT
  Sex: Male

DRUGS (10)
  1. COUMADIN [Concomitant]
  2. VICODIN [Concomitant]
  3. IRON [Concomitant]
  4. GLEEVEC [Suspect]
     Indication: GASTROINTESTINAL STROMAL TUMOUR
     Dosage: 400 MG, DAILY
     Route: 048
     Dates: start: 20090122
  5. FLOMAX [Concomitant]
  6. ENALAPRIL MALEATE [Concomitant]
  7. BENTYL [Concomitant]
  8. NORVASC [Concomitant]
  9. TOPROL-XL [Concomitant]
  10. PROTONIX [Concomitant]

REACTIONS (4)
  - ARTERIOSCLEROSIS [None]
  - DEATH [None]
  - NEOPLASM PROGRESSION [None]
  - NEOPLASM MALIGNANT [None]
